FAERS Safety Report 6848472-7 (Version None)
Quarter: 2010Q3

REPORT INFORMATION
  Report Type: 
  Country: None (occurrence: None)
  Receive Date: 20100716
  Receipt Date: 20100708
  Transmission Date: 20110219
  Serious: Yes (Hospitalization)
  Sender: FDA-Public Use
  Company Number: US-JNJFOC-20100703320

PATIENT
  Sex: Male
  Weight: 79.38 kg

DRUGS (5)
  1. DURAGESIC-100 [Suspect]
     Indication: RHEUMATOID ARTHRITIS
     Route: 062
  2. DURAGESIC-100 [Suspect]
     Dosage: 50 UG/HR PLUS 25UG/HR
     Route: 062
  3. DURAGESIC-100 [Suspect]
     Dosage: 25 MCG 1 IN 72 HOURS
     Route: 062
  4. DURAGESIC-100 [Suspect]
     Dosage: 50 MCG 1 IN 72 HOURS
     Route: 062
  5. IBUPROFEN [Concomitant]
     Indication: ARTHRALGIA
     Route: 048

REACTIONS (4)
  - GASTROOESOPHAGEAL REFLUX DISEASE [None]
  - OVERDOSE [None]
  - PNEUMONIA [None]
  - POST-TRAUMATIC STRESS DISORDER [None]
